FAERS Safety Report 24194598 (Version 1)
Quarter: 2024Q3

REPORT INFORMATION
  Report Type: Spontaneous
  Country: US (occurrence: US)
  Receive Date: 20240809
  Receipt Date: 20240809
  Transmission Date: 20241017
  Serious: Yes (Other)
  Sender: AMNEAL
  Company Number: US-AMNEAL PHARMACEUTICALS-2024-AMRX-02850

PATIENT
  Sex: Female
  Weight: 0.57 kg

DRUGS (1)
  1. ALYMSYS [Suspect]
     Active Substance: BEVACIZUMAB-MALY
     Indication: Retinopathy of prematurity
     Dosage: (0.625 MG/0.025ML) INJECTED 1.5 MM BEHIND THE LIMBUS TEMPORALLY ON A 32- GAUGE NEEDLE) OD (RIGHT EYE

REACTIONS (1)
  - Glaucoma [Recovering/Resolving]
